FAERS Safety Report 12233161 (Version 2)
Quarter: 2016Q2

REPORT INFORMATION
  Report Type: Spontaneous
  Country: US (occurrence: US)
  Receive Date: 20160404
  Receipt Date: 20160527
  Transmission Date: 20160815
  Serious: No
  Sender: FDA-Public Use
  Company Number: US-ASTRAZENECA-2016SE34393

PATIENT
  Age: 36 Year
  Sex: Male
  Weight: 104.3 kg

DRUGS (2)
  1. NEXIUM 24HR [Suspect]
     Active Substance: ESOMEPRAZOLE MAGNESIUM
     Indication: GASTROOESOPHAGEAL REFLUX DISEASE
     Route: 048
     Dates: start: 2014
  2. TYLENOL [Concomitant]
     Active Substance: ACETAMINOPHEN
     Dosage: HE USES EVERY ONCE IN A WHILE

REACTIONS (5)
  - Poor quality drug administered [Unknown]
  - Product use issue [Unknown]
  - Accidental exposure to product [Unknown]
  - Burning sensation [Unknown]
  - Product physical issue [Unknown]

NARRATIVE: CASE EVENT DATE: 2014
